FAERS Safety Report 14208336 (Version 2)
Quarter: 2017Q4

REPORT INFORMATION
  Report Type: Spontaneous
  Country: PH (occurrence: PH)
  Receive Date: 20171121
  Receipt Date: 20171226
  Transmission Date: 20180321
  Serious: Yes (Disabling)
  Sender: FDA-Public Use
  Company Number: PHHY2017PH170113

PATIENT
  Age: 55 Year
  Sex: Male
  Weight: 61 kg

DRUGS (1)
  1. SCAPHO [Suspect]
     Active Substance: SECUKINUMAB
     Indication: PSORIATIC ARTHROPATHY
     Dosage: 150 MG, QMO
     Route: 058
     Dates: start: 20161006

REACTIONS (3)
  - Inappropriate schedule of drug administration [Unknown]
  - Arthralgia [Unknown]
  - Back pain [Not Recovered/Not Resolved]

NARRATIVE: CASE EVENT DATE: 20161006
